FAERS Safety Report 23188924 (Version 1)
Quarter: 2023Q4

REPORT INFORMATION
  Report Type: Other
  Country: IL (occurrence: None)
  Receive Date: 20231115
  Receipt Date: 20231115
  Transmission Date: 20240110
  Serious: Yes (Life-Threatening, Hospitalization, Other)
  Sender: FDA-Public Use
  Company Number: IL-Invatech-000314

PATIENT
  Age: 66 Year
  Sex: Male

DRUGS (1)
  1. NAPROXEN SODIUM [Suspect]
     Active Substance: NAPROXEN SODIUM
     Indication: Peripheral swelling
     Dosage: 500 MG

REACTIONS (6)
  - Hypersensitivity vasculitis [Recovered/Resolved]
  - Purpura fulminans [Recovered/Resolved]
  - Pancytopenia [Unknown]
  - Haematochezia [Unknown]
  - Palatal oedema [Unknown]
  - Acute kidney injury [Unknown]
